FAERS Safety Report 5190183-0 (Version None)
Quarter: 2006Q4

REPORT INFORMATION
  Report Type: 
  Country: None (occurrence: None)
  Receive Date: 20061222
  Receipt Date: 20060922
  Transmission Date: 20070319
  Serious: No
  Sender: FDA-Public Use
  Company Number: US-AMGEN-KDL194484

PATIENT
  Sex: Female

DRUGS (4)
  1. ARANESP [Suspect]
     Indication: ANAEMIA
     Dates: start: 20060101
  2. AGRYLIN [Concomitant]
  3. HYDROXYUREA [Concomitant]
  4. COUMADIN [Concomitant]

REACTIONS (5)
  - ARTHRALGIA [None]
  - DEPRESSION [None]
  - DRUG INEFFECTIVE [None]
  - HYPERSOMNIA [None]
  - PLATELET COUNT INCREASED [None]
